FAERS Safety Report 6252052-4 (Version None)
Quarter: 2009Q2

REPORT INFORMATION
  Report Type: 
  Country: None (occurrence: None)
  Receive Date: 20090630
  Receipt Date: 20060723
  Transmission Date: 20091009
  Serious: Yes (Hospitalization)
  Sender: FDA-Public Use
  Company Number: US-ROCHE-638704

PATIENT
  Sex: Male

DRUGS (12)
  1. ENFUVIRTIDE [Suspect]
     Route: 065
     Dates: start: 20060116, end: 20080814
  2. LEXIVA [Concomitant]
     Dates: start: 20060116, end: 20080814
  3. NORVIR [Concomitant]
     Dates: start: 20060116, end: 20080814
  4. TRUVADA [Concomitant]
     Dosage: FREQUENCY: QD
     Dates: start: 20060116, end: 20080814
  5. BACTRIM [Concomitant]
     Dosage: DRUG NAME BACTRIM IV
     Dates: start: 20060723, end: 20060728
  6. BACTRIM [Concomitant]
     Dates: start: 20070827, end: 20070904
  7. VANCOMYCIN [Concomitant]
     Dates: start: 20060723, end: 20060803
  8. LEVAQUIN [Concomitant]
     Dosage: FREQUENCY: QD
     Dates: start: 20060807, end: 20060824
  9. LEVAQUIN [Concomitant]
     Dosage: FREQUENCY: QD
     Dates: start: 20070827, end: 20070904
  10. AVELOX [Concomitant]
     Dates: start: 20070115, end: 20070117
  11. MERREM [Concomitant]
     Dates: start: 20070115, end: 20070117
  12. BACTRIM DS [Concomitant]
     Dosage: FREQUENCY: QID
     Dates: start: 20060729, end: 20060824

REACTIONS (3)
  - HIV INFECTION [None]
  - PNEUMOCYSTIS JIROVECI PNEUMONIA [None]
  - VERTIGO [None]
